FAERS Safety Report 7509960-3 (Version None)
Quarter: 2011Q2

REPORT INFORMATION
  Report Type: 
  Country: None (occurrence: None)
  Receive Date: 20110519
  Receipt Date: 20110505
  Transmission Date: 20111010
  Serious: Yes (Hospitalization, Other)
  Sender: FDA-Public Use
  Company Number: 2011MA005453

PATIENT
  Age: 50 Year
  Sex: Male

DRUGS (1)
  1. BUPROPION HYDROCHLORIDE EXTENDED-RELEASE TABLETS USP, 150MG (ZYBAN) (A [Suspect]

REACTIONS (11)
  - STATUS EPILEPTICUS [None]
  - GRAND MAL CONVULSION [None]
  - EXTENSOR PLANTAR RESPONSE [None]
  - CONFUSIONAL STATE [None]
  - ATAXIA [None]
  - SOMNOLENCE [None]
  - RETROGRADE AMNESIA [None]
  - LOSS OF CONSCIOUSNESS [None]
  - DYSARTHRIA [None]
  - AMNESIA [None]
  - URINARY INCONTINENCE [None]
